FAERS Safety Report 21049658 (Version 3)
Quarter: 2022Q3

REPORT INFORMATION
  Report Type: Spontaneous
  Country: US (occurrence: US)
  Receive Date: 20220706
  Receipt Date: 20220914
  Transmission Date: 20221027
  Serious: Yes (Other)
  Sender: FDA-Public Use
  Company Number: US-TEVA-2022-US-2053346

PATIENT
  Age: 84 Year
  Sex: Female

DRUGS (13)
  1. HYDROCHLOROTHIAZIDE\VALSARTAN [Suspect]
     Active Substance: HYDROCHLOROTHIAZIDE\VALSARTAN
     Indication: Hypertension
     Dosage: DOSE: 160/25 MG
     Route: 065
     Dates: start: 20150527, end: 20171121
  2. HYDROCHLOROTHIAZIDE\VALSARTAN [Suspect]
     Active Substance: HYDROCHLOROTHIAZIDE\VALSARTAN
     Indication: Hypertension
     Dosage: DOSE: 160/25 MG
     Route: 065
     Dates: start: 20160121, end: 20200203
  3. HYDROCHLOROTHIAZIDE\VALSARTAN [Suspect]
     Active Substance: HYDROCHLOROTHIAZIDE\VALSARTAN
     Indication: Hypertension
     Dosage: DOSE: 160/25 MG
     Route: 065
     Dates: start: 20180611, end: 20180711
  4. HYDROCHLOROTHIAZIDE\VALSARTAN [Suspect]
     Active Substance: HYDROCHLOROTHIAZIDE\VALSARTAN
     Indication: Hypertension
     Dosage: DOSE: 160/25 MG
     Route: 065
     Dates: start: 20181016, end: 20181211
  5. HYDROCHLOROTHIAZIDE\VALSARTAN [Suspect]
     Active Substance: HYDROCHLOROTHIAZIDE\VALSARTAN
     Indication: Product used for unknown indication
     Dosage: DOSE: 160/25 MG
     Route: 065
     Dates: start: 2018
  6. CARVEDILOL [Concomitant]
     Active Substance: CARVEDILOL
     Indication: Hypertension
     Dosage: 25 MILLIGRAM DAILY;
     Route: 065
     Dates: start: 2005
  7. ESCITALOPRAM [Concomitant]
     Active Substance: ESCITALOPRAM OXALATE
     Indication: Anxiety
     Dosage: 10 MILLIGRAM DAILY;
     Route: 065
     Dates: start: 201501, end: 201702
  8. ALPRAZOLAM [Concomitant]
     Active Substance: ALPRAZOLAM
     Indication: Product used for unknown indication
     Route: 065
  9. ATORVASTATIN [Concomitant]
     Active Substance: ATORVASTATIN
     Indication: Product used for unknown indication
     Route: 065
  10. OMEGA 3 [Concomitant]
     Active Substance: CAPSAICIN
     Indication: Cardiac disorder
     Dosage: 1 DOSAGE FORMS DAILY; 1/DAY
     Route: 065
     Dates: start: 2005
  11. VITAMIN D3 [Concomitant]
     Active Substance: CHOLECALCIFEROL
     Indication: Routine health maintenance
     Dosage: 1 DOSAGE FORMS DAILY; 1/DAY
     Route: 065
     Dates: start: 2002
  12. VITAMIN C [Concomitant]
     Active Substance: ASCORBIC ACID
     Indication: Immune system disorder
     Dosage: 1 DOSAGE FORMS DAILY; 1/DAY
     Route: 065
     Dates: start: 2005
  13. SELENIUM [Concomitant]
     Active Substance: SELENIUM
     Indication: Routine health maintenance
     Dosage: 1 DOSAGE FORMS DAILY; 1/DAY
     Route: 065
     Dates: start: 2005

REACTIONS (2)
  - B-cell lymphoma [Unknown]
  - Tonsil cancer [Unknown]
